FAERS Safety Report 7048100-4 (Version None)
Quarter: 2010Q4

REPORT INFORMATION
  Report Type: 
  Country: None (occurrence: None)
  Receive Date: 20101015
  Receipt Date: 20101013
  Transmission Date: 20110411
  Serious: Yes (Hospitalization)
  Sender: FDA-Public Use
  Company Number: GB-WYE-G06775810

PATIENT
  Sex: Female

DRUGS (13)
  1. GEMTUZUMAB OZOGAMICIN [Suspect]
     Indication: ACUTE MYELOID LEUKAEMIA
     Dosage: 5 MG EVERY 1 TOT
     Route: 042
     Dates: start: 20100915, end: 20100915
  2. ACYCLOVIR [Concomitant]
  3. CIPROFLOXACIN [Concomitant]
  4. FLUCONAZOLE [Concomitant]
  5. LIPITOR [Concomitant]
  6. NYSTATIN [Concomitant]
     Dosage: MOUTHWASH AS REQUIRED
     Route: 048
  7. DOMPERIDONE [Concomitant]
     Dosage: 10 MG (FREQUENCY UNKNOWN)
  8. SENNA [Concomitant]
     Dosage: 75 MG EVERY 1 PRN
  9. LANSOPRAZOLE [Concomitant]
  10. CHLORPHENIRAMINE MALEATE [Concomitant]
  11. BENZYDAMINE [Concomitant]
     Dosage: 0.15 AS REQUIRED
  12. ARA-C [Suspect]
     Indication: ACUTE MYELOID LEUKAEMIA
     Dates: start: 20100916, end: 20100926
  13. LISINOPRIL [Concomitant]

REACTIONS (3)
  - EPILEPSY [None]
  - ISCHAEMIC STROKE [None]
  - THALAMIC INFARCTION [None]
